FAERS Safety Report 19744786 (Version 1)
Quarter: 2021Q3

REPORT INFORMATION
  Report Type: Spontaneous
  Country: DE (occurrence: DE)
  Receive Date: 20210825
  Receipt Date: 20210825
  Transmission Date: 20211014
  Serious: Yes (Hospitalization)
  Sender: FDA-Public Use
  Company Number: DE-MYLANLABS-2021M1054444

PATIENT
  Age: 58 Year
  Sex: Female

DRUGS (3)
  1. PREDNISOLONE. [Suspect]
     Active Substance: PREDNISOLONE
     Indication: PRODUCT USED FOR UNKNOWN INDICATION
     Dosage: 50 MG, 20 TABL TGL SEIT 5 TAGEN
     Route: 065
  2. IBUPROFEN. [Concomitant]
     Active Substance: IBUPROFEN
     Dosage: 600 MG, BEDARF
  3. LEVOTHYROXINE SODIUM. [Concomitant]
     Active Substance: LEVOTHYROXINE SODIUM
     Dosage: 175 ?G / WOCHE, 1?0?0?0

REACTIONS (5)
  - Disturbance in attention [Unknown]
  - Hyperglycaemia [Unknown]
  - Dyspnoea [Unknown]
  - Product administration error [Unknown]
  - Asthenia [Unknown]

NARRATIVE: CASE EVENT DATE: 20201217
